FAERS Safety Report 6934075-2 (Version None)
Quarter: 2010Q3

REPORT INFORMATION
  Report Type: 
  Country: None (occurrence: None)
  Receive Date: 20100820
  Receipt Date: 20100812
  Transmission Date: 20110219
  Serious: Yes (Death, Hospitalization, Other)
  Sender: FDA-Public Use
  Company Number: NL-GENZYME-THYM-1001777

PATIENT
  Age: 9 Year
  Sex: Male

DRUGS (15)
  1. THYMOGLOBULIN [Suspect]
     Indication: BONE MARROW CONDITIONING REGIMEN
  2. FLUDARABINE [Concomitant]
     Indication: BONE MARROW CONDITIONING REGIMEN
     Dosage: 30 MG/M2, UNK
  3. TREOSULFAN [Concomitant]
     Indication: BONE MARROW CONDITIONING REGIMEN
     Dosage: 4 G/M2, UNK
  4. CYCLOPHOSPHAMIDE [Concomitant]
     Indication: BONE MARROW CONDITIONING REGIMEN
     Dosage: 50 MG/KG, ONCE
  5. MELPHALAN [Concomitant]
     Indication: BONE MARROW CONDITIONING REGIMEN
     Dosage: 70 MG/M2, ONCE
  6. ALEMTUZUMAB [Concomitant]
     Indication: BONE MARROW CONDITIONING REGIMEN
     Dosage: 0.5 MG/KG, UNK
  7. TACROLIMUS [Concomitant]
     Indication: PROPHYLAXIS AGAINST TRANSPLANT REJECTION
  8. MYCOPHENOLATE MOFETIL [Concomitant]
     Indication: PROPHYLAXIS AGAINST TRANSPLANT REJECTION
  9. PREDNISONE [Concomitant]
     Indication: PROPHYLAXIS AGAINST TRANSPLANT REJECTION
  10. DEFIBROTIDE [Concomitant]
     Indication: PROPHYLAXIS
  11. AMPHOTERICIN B [Concomitant]
     Indication: INFECTION PROPHYLAXIS
  12. POLYMYXIN [Concomitant]
     Indication: INFECTION PROPHYLAXIS
  13. NEOMYCIN SULFATE [Concomitant]
     Indication: INFECTION PROPHYLAXIS
  14. PENTAMIDINE ISETHIONATE [Concomitant]
     Indication: INFECTION PROPHYLAXIS
  15. IMMU-G [Concomitant]
     Indication: INFECTION PROPHYLAXIS

REACTIONS (13)
  - ADENOVIRUS INFECTION [None]
  - ANAPHYLACTIC SHOCK [None]
  - BLOOD BILIRUBIN INCREASED [None]
  - CHOLESTASIS [None]
  - EAR INFECTION [None]
  - GAMMA-GLUTAMYLTRANSFERASE INCREASED [None]
  - GASTROENTERITIS [None]
  - HERPES ZOSTER [None]
  - HERPES ZOSTER DISSEMINATED [None]
  - HYPERTENSION [None]
  - RENAL FAILURE [None]
  - STAPHYLOCOCCAL SCALDED SKIN SYNDROME [None]
  - STAPHYLOCOCCAL SKIN INFECTION [None]
